FAERS Safety Report 7339215-1 (Version None)
Quarter: 2011Q1

REPORT INFORMATION
  Report Type: 
  Country: None (occurrence: None)
  Receive Date: 20110308
  Receipt Date: 20110228
  Transmission Date: 20110831
  Serious: Yes (Other)
  Sender: FDA-Public Use
  Company Number: CA-US-EMD SERONO, INC.-7045150

PATIENT
  Sex: Female

DRUGS (4)
  1. REBIF [Suspect]
     Indication: MULTIPLE SCLEROSIS
     Dates: start: 20100826
  2. REBIF [Suspect]
     Dates: start: 20110101
  3. ZOLOFT [Concomitant]
  4. VITAMINE D [Concomitant]

REACTIONS (4)
  - GOITRE [None]
  - THYROID CYST [None]
  - INJECTION SITE REACTION [None]
  - PLATELET COUNT DECREASED [None]
